FAERS Safety Report 7226101-0 (Version None)
Quarter: 2011Q1

REPORT INFORMATION
  Report Type: 
  Country: None (occurrence: None)
  Receive Date: 20110113
  Receipt Date: 20110107
  Transmission Date: 20110831
  Serious: Yes (Life-Threatening, Hospitalization, Congenital Anomaly, Other)
  Sender: FDA-Public Use
  Company Number: US-US-EMD SERONO, INC.-7035256

PATIENT
  Sex: Male
  Weight: 1 kg

DRUGS (1)
  1. REBIF [Suspect]
     Route: 064

REACTIONS (5)
  - SMALL FOR DATES BABY [None]
  - PATENT DUCTUS ARTERIOSUS [None]
  - PREMATURE BABY [None]
  - JAUNDICE [None]
  - DRUG EXPOSURE DURING PREGNANCY [None]
